FAERS Safety Report 4726356-8 (Version None)
Quarter: 2005Q3

REPORT INFORMATION
  Report Type: 
  Country: None (occurrence: None)
  Receive Date: 20050725
  Receipt Date: 20050714
  Transmission Date: 20060218
  Serious: Yes (Other)
  Sender: FDA-Public Use
  Company Number: 2005087462

PATIENT
  Sex: Female

DRUGS (2)
  1. DOSTINEX [Suspect]
     Indication: HYPERPROLACTINAEMIA
     Dosage: 0.25 MG (0.5 MG, UNKNOWN), ORAL
     Route: 048
     Dates: start: 19980101
  2. VITAMINS (VITAMINS) [Concomitant]

REACTIONS (1)
  - DRUG DEPENDENCE [None]
